FAERS Safety Report 7774869-7 (Version None)
Quarter: 2011Q3

REPORT INFORMATION
  Report Type: 
  Country: None (occurrence: None)
  Receive Date: 20110923
  Receipt Date: 20110921
  Transmission Date: 20111222
  Serious: Yes (Other)
  Sender: FDA-Public Use
  Company Number: CA-ABBOTT-11P-028-0857124-00

PATIENT
  Sex: Female
  Weight: 44.492 kg

DRUGS (4)
  1. FOLIC ACID [Concomitant]
     Indication: CROHN'S DISEASE
     Route: 048
     Dates: start: 20080820, end: 20110803
  2. METHOTREXATE [Concomitant]
     Indication: CROHN'S DISEASE
     Route: 048
     Dates: start: 20080820, end: 20110803
  3. HUMIRA [Suspect]
     Indication: CROHN'S DISEASE
     Route: 058
     Dates: start: 20080820, end: 20110803
  4. LOMOTIL [Concomitant]
     Indication: CROHN'S DISEASE
     Route: 048
     Dates: start: 19880101

REACTIONS (2)
  - INTESTINAL OBSTRUCTION [None]
  - ABDOMINAL PAIN [None]
